FAERS Safety Report 17890413 (Version 1)
Quarter: 2020Q2

REPORT INFORMATION
  Report Type: Spontaneous
  Country: US (occurrence: US)
  Receive Date: 20200612
  Receipt Date: 20200612
  Transmission Date: 20200714
  Serious: Yes (Hospitalization, Other)
  Sender: FDA-Public Use
  Company Number: US-PFIZER INC-2020227304

PATIENT
  Sex: Female

DRUGS (1)
  1. GEMCITABINE HYDROCHLORIDE. [Suspect]
     Active Substance: GEMCITABINE HYDROCHLORIDE
     Indication: BLADDER CANCER
     Dosage: UNK

REACTIONS (17)
  - Weight decreased [Unknown]
  - Sunburn [Unknown]
  - Muscle spasms [Recovering/Resolving]
  - Insomnia [Unknown]
  - Cough [Unknown]
  - Balance disorder [Unknown]
  - Constipation [Unknown]
  - Neuropathy peripheral [Recovering/Resolving]
  - Malaise [Unknown]
  - Fatigue [Unknown]
  - Dysgeusia [Unknown]
  - Decreased appetite [Unknown]
  - Alopecia [Unknown]
  - Cystitis [Unknown]
  - Gastrointestinal disorder [Unknown]
  - Nausea [Unknown]
  - Asthenia [Unknown]
